FAERS Safety Report 17730053 (Version 2)
Quarter: 2020Q2

REPORT INFORMATION
  Report Type: Report from Study
  Country: IT (occurrence: IT)
  Receive Date: 20200430
  Receipt Date: 20200513
  Transmission Date: 20200714
  Serious: Yes (Hospitalization)
  Sender: FDA-Public Use
  Company Number: IT-EXELIXIS-CABO-20027877

PATIENT
  Age: 73 Year
  Sex: Male

DRUGS (11)
  1. AMLODIPINE [Concomitant]
     Active Substance: AMLODIPINE BESYLATE
     Indication: HYPERTENSION
     Dosage: UNK
  2. ACEBITOR [Concomitant]
     Indication: HYPERTENSION
     Dosage: UNK
  3. LANSOPRAZOLE. [Concomitant]
     Active Substance: LANSOPRAZOLE
     Indication: GASTRITIS PROPHYLAXIS
     Dosage: UNK
  4. CABOMETYX [Suspect]
     Active Substance: CABOZANTINIB S-MALATE
     Indication: HEPATOCELLULAR CARCINOMA
     Dosage: 60 MG, QD
     Route: 048
     Dates: start: 20200211, end: 20200326
  5. NORVASC [Concomitant]
     Active Substance: AMLODIPINE BESYLATE
     Dosage: UNK
  6. TENORMIN [Concomitant]
     Active Substance: ATENOLOL
     Dosage: UNK
  7. CABOMETYX [Suspect]
     Active Substance: CABOZANTINIB S-MALATE
     Dosage: 60 MG, QD
     Route: 048
     Dates: start: 20200410
  8. TIORFIX [Suspect]
     Active Substance: RACECADOTRIL
     Indication: DIARRHOEA
     Dosage: 100 MG, QD
     Route: 048
     Dates: start: 20200325, end: 20200325
  9. CAPTOPRIL. [Concomitant]
     Active Substance: CAPTOPRIL
     Dosage: UNK
  10. LANSOX [Concomitant]
     Active Substance: LANSOPRAZOLE
     Dosage: UNK
  11. ATENOLOL. [Concomitant]
     Active Substance: ATENOLOL
     Indication: HYPERTENSION
     Dosage: UNK

REACTIONS (10)
  - Periorbital swelling [Recovering/Resolving]
  - Epiglottic oedema [Recovering/Resolving]
  - Mouth swelling [Recovering/Resolving]
  - Lip oedema [Recovering/Resolving]
  - Diarrhoea [Recovered/Resolved]
  - Face oedema [Recovered/Resolved]
  - Venous thrombosis [Not Recovered/Not Resolved]
  - Localised oedema [Recovering/Resolving]
  - Eyelid rash [Not Recovered/Not Resolved]
  - Tongue oedema [Recovering/Resolving]

NARRATIVE: CASE EVENT DATE: 20200224
